FAERS Safety Report 6994226-0 (Version None)
Quarter: 2010Q3

REPORT INFORMATION
  Report Type: 
  Country: None (occurrence: None)
  Receive Date: 20100917
  Receipt Date: 20100304
  Transmission Date: 20110219
  Serious: Yes (Hospitalization)
  Sender: FDA-Public Use
  Company Number: US-ASTRAZENECA-2010SE09613

PATIENT

DRUGS (2)
  1. SEROQUEL [Suspect]
     Route: 048
  2. SEROQUEL [Suspect]
     Dosage: TOOK 14-100 MG TABLETS (1400 MG)
     Route: 048

REACTIONS (2)
  - BLOOD PRESSURE DECREASED [None]
  - OVERDOSE [None]
